FAERS Safety Report 8547111 (Version 3)
Quarter: 2013Q4

REPORT INFORMATION
  Report Type: Spontaneous
  Country: US (occurrence: None)
  Receive Date: 20120315
  Receipt Date: 20131226
  Transmission Date: 20140711
  Serious: Yes (Other)
  Sender: FDA-Public Use
  Company Number: PHHY2011US43494

PATIENT
  Age: 57 Year
  Sex: Female

DRUGS (1)
  1. GILENYA [Suspect]
     Indication: MULTIPLE SCLEROSIS
     Route: 048
     Dates: start: 20110426

REACTIONS (13)
  - Nausea [None]
  - Pain [None]
  - Vomiting [None]
  - Hypersensitivity [None]
  - Temperature intolerance [None]
  - Visual impairment [None]
  - Fall [None]
  - Fatigue [None]
  - Headache [None]
  - Abdominal discomfort [None]
  - Eye pain [None]
  - Influenza [None]
  - Sinusitis [None]
